FAERS Safety Report 25720894 (Version 1)
Quarter: 2025Q3

REPORT INFORMATION
  Report Type: Spontaneous
  Country: US (occurrence: US)
  Receive Date: 20250825
  Receipt Date: 20250825
  Transmission Date: 20251021
  Serious: Yes (Other)
  Sender: CATALYST PHARMA
  Company Number: US-CATALYST PHARMACEUTICALS-US-CATA-25-01209

PATIENT
  Sex: Male

DRUGS (2)
  1. AGAMREE [Suspect]
     Active Substance: VAMOROLONE
     Indication: Product used for unknown indication
     Route: 065
  2. DUVYZAT [Suspect]
     Active Substance: GIVINOSTAT
     Indication: Product used for unknown indication
     Route: 065
     Dates: start: 20250420

REACTIONS (4)
  - Gait inability [Unknown]
  - Muscular weakness [Unknown]
  - General physical health deterioration [Unknown]
  - Femur fracture [Unknown]
